FAERS Safety Report 7098287-2 (Version None)
Quarter: 2010Q4

REPORT INFORMATION
  Report Type: 
  Country: None (occurrence: None)
  Receive Date: 20101112
  Receipt Date: 20100821
  Transmission Date: 20110411
  Serious: No
  Sender: FDA-Public Use
  Company Number: A0878173A

PATIENT
  Sex: Female

DRUGS (1)
  1. TREXIMET [Suspect]
     Indication: MIGRAINE
     Route: 065

REACTIONS (1)
  - DRUG INEFFECTIVE [None]
